FAERS Safety Report 13721314 (Version 1)
Quarter: 2017Q3

REPORT INFORMATION
  Report Type: Spontaneous
  Country: US (occurrence: US)
  Receive Date: 20170705
  Receipt Date: 20170705
  Transmission Date: 20171127
  Serious: Yes (Hospitalization)
  Sender: FDA-Public Use
  Company Number: None

PATIENT
  Age: 45 Year
  Sex: Female

DRUGS (1)
  1. ZEPATIER [Suspect]
     Active Substance: ELBASVIR\GRAZOPREVIR
     Indication: HEPATITIS C
     Dosage: ?          OTHER DOSE:MG/MG;?
     Route: 048
     Dates: start: 20170526, end: 20170630

REACTIONS (4)
  - Gastroenteritis viral [None]
  - Pulmonary thrombosis [None]
  - Kidney infection [None]
  - Thrombosis [None]

NARRATIVE: CASE EVENT DATE: 20170630
